FAERS Safety Report 24222829 (Version 1)
Quarter: 2024Q3

REPORT INFORMATION
  Report Type: Spontaneous
  Country: FR (occurrence: FR)
  Receive Date: 20240819
  Receipt Date: 20240819
  Transmission Date: 20241017
  Serious: Yes (Other)
  Sender: ROCHE
  Company Number: None

PATIENT
  Age: 68 Year
  Sex: Female

DRUGS (14)
  1. AVASTIN [Interacting]
     Active Substance: BEVACIZUMAB
     Indication: Product used for unknown indication
     Dosage: UNK
     Route: 065
  2. OXALIPLATIN [Interacting]
     Active Substance: OXALIPLATIN
     Indication: Product used for unknown indication
     Dosage: UNK
     Route: 065
  3. IRINOTECAN [Interacting]
     Active Substance: IRINOTECAN
     Indication: Product used for unknown indication
     Dosage: UNK
     Route: 065
  4. EMEND [Interacting]
     Active Substance: APREPITANT
     Indication: Prophylaxis of nausea and vomiting
     Dosage: UNK
     Route: 048
  5. SOLU-MEDROL [Concomitant]
     Active Substance: METHYLPREDNISOLONE SODIUM SUCCINATE
  6. SOLU PRED [Concomitant]
  7. LEUCOVORIN [Concomitant]
     Active Substance: LEUCOVORIN\LEUCOVORIN CALCIUM
  8. ONDANSETRON [Concomitant]
     Active Substance: ONDANSETRON
  9. FILGRASTIM [Concomitant]
     Active Substance: FILGRASTIM
  10. XANAX [Concomitant]
     Active Substance: ALPRAZOLAM
  11. FLUOROURACIL [Concomitant]
     Active Substance: FLUOROURACIL
  12. PRIMPERAN [Concomitant]
     Active Substance: METOCLOPRAMIDE HYDROCHLORIDE
  13. ATROPINE [Concomitant]
     Active Substance: ATROPINE
  14. PANTOPRAZOLE SODIUM [Concomitant]
     Active Substance: PANTOPRAZOLE SODIUM

REACTIONS (6)
  - Drug interaction [Unknown]
  - Muscle contracture [Unknown]
  - Paraesthesia [Unknown]
  - Muscle contractions involuntary [Unknown]
  - Tetany [Unknown]
  - Muscle spasms [Unknown]
